FAERS Safety Report 6527243-5 (Version None)
Quarter: 2009Q4

REPORT INFORMATION
  Report Type: 
  Country: None (occurrence: None)
  Receive Date: 20091230
  Receipt Date: 20091217
  Transmission Date: 20100525
  Serious: Yes (Other)
  Sender: FDA-Public Use
  Company Number: SPV1-2009-02559

PATIENT
  Age: 80 Year
  Sex: Female

DRUGS (2)
  1. XAGRID (ANAGRELIDE HYDROCHLORIDE) CAPSULE [Suspect]
     Indication: ESSENTIAL THROMBOCYTHAEMIA
     Dosage: 1 MG, DAILY
     Dates: start: 20091209
  2. ASPIRIN [Concomitant]

REACTIONS (1)
  - BLOOD POTASSIUM INCREASED [None]
